FAERS Safety Report 8243880-4 (Version None)
Quarter: 2012Q1

REPORT INFORMATION
  Report Type: 
  Country: None (occurrence: None)
  Receive Date: 20120329
  Receipt Date: 20110425
  Transmission Date: 20120608
  Serious: No
  Sender: FDA-Public Use
  Company Number: US-MYLANLABS-2011S1005814

PATIENT
  Sex: Female

DRUGS (3)
  1. ESTRADIOL [Suspect]
     Indication: HOT FLUSH
     Dosage: QW
     Route: 062
     Dates: start: 20101201
  2. ESTRADIOL [Suspect]
     Indication: VULVOVAGINAL DRYNESS
     Dosage: QW
     Route: 062
     Dates: start: 20101201
  3. ESTRADIOL [Suspect]
     Indication: MOOD SWINGS
     Dosage: QW
     Route: 062
     Dates: start: 20101201

REACTIONS (6)
  - APPLICATION SITE ERYTHEMA [None]
  - DRUG INEFFECTIVE [None]
  - MOOD SWINGS [None]
  - APPLICATION SITE IRRITATION [None]
  - HOT FLUSH [None]
  - VULVOVAGINAL DRYNESS [None]
